FAERS Safety Report 13829377 (Version 6)
Quarter: 2020Q3

REPORT INFORMATION
  Report Type: Spontaneous
  Country: US (occurrence: US)
  Receive Date: 20170803
  Receipt Date: 20200811
  Transmission Date: 20201102
  Serious: Yes (Other)
  Sender: FDA-Public Use
  Company Number: US-PFIZER INC-2017334117

PATIENT
  Age: 67 Year
  Sex: Female
  Weight: 86 kg

DRUGS (1)
  1. LYRICA [Suspect]
     Active Substance: PREGABALIN
     Indication: NEUROPATHY PERIPHERAL
     Dosage: 150 MG, 4X/DAY [1 CAPSULE BY MOUTH 4 TIMES DAILY]
     Route: 048

REACTIONS (1)
  - Spinal cord disorder [Unknown]
